FAERS Safety Report 24902617 (Version 2)
Quarter: 2025Q2

REPORT INFORMATION
  Report Type: Report from Study
  Country: JP (occurrence: JP)
  Receive Date: 20250130
  Receipt Date: 20250417
  Transmission Date: 20250717
  Serious: Yes (Other)
  Sender: AMGEN
  Company Number: JP-KISSEI-TV20240693_P_1

PATIENT
  Age: 81 Year
  Sex: Female
  Weight: 57.4 kg

DRUGS (10)
  1. AVACOPAN [Suspect]
     Active Substance: AVACOPAN
     Indication: Microscopic polyangiitis
     Dosage: 30,MG,BID
     Route: 048
     Dates: start: 20231030
  2. PREDNISOLONE [Suspect]
     Active Substance: PREDNISOLONE
     Indication: Microscopic polyangiitis
     Dosage: PERORAL MEDICINE
     Route: 048
     Dates: start: 20231030
  3. SULFAMETHOXAZOLE\TRIMETHOPRIM [Concomitant]
     Active Substance: SULFAMETHOXAZOLE\TRIMETHOPRIM
     Indication: Antifungal prophylaxis
     Dosage: PERORAL MEDICINE
     Route: 048
     Dates: start: 20231129
  4. AMLODIPINE [Concomitant]
     Active Substance: AMLODIPINE BESYLATE
     Route: 048
     Dates: start: 20231102
  5. LOSARTAN POTASSIUM [Concomitant]
     Active Substance: LOSARTAN POTASSIUM
     Route: 048
     Dates: start: 20231227
  6. AZOSEMIDE [Concomitant]
     Active Substance: AZOSEMIDE
     Indication: Microscopic polyangiitis
     Route: 048
     Dates: start: 20231107
  7. TENELIGLIPTIN HYDROBROMIDE HYDRATE [Concomitant]
     Active Substance: TENELIGLIPTIN HYDROBROMIDE HYDRATE
     Route: 048
     Dates: start: 20231107
  8. FEBUXOSTAT [Concomitant]
     Active Substance: FEBUXOSTAT
     Indication: Microscopic polyangiitis
     Route: 048
     Dates: start: 20231129
  9. ALENDRONATE SODIUM [Concomitant]
     Active Substance: ALENDRONATE SODIUM
     Indication: Prophylaxis
     Route: 048
     Dates: start: 20231129
  10. AMLODIPINE [Concomitant]
     Active Substance: AMLODIPINE BESYLATE
     Route: 048
     Dates: start: 20231102

REACTIONS (2)
  - Liver disorder [Recovering/Resolving]
  - Diabetes mellitus [Not Recovered/Not Resolved]

NARRATIVE: CASE EVENT DATE: 20231107
